FAERS Safety Report 4762013-X (Version None)
Quarter: 2005Q3

REPORT INFORMATION
  Report Type: 
  Country: None (occurrence: None)
  Receive Date: 20050831
  Receipt Date: 20050503
  Transmission Date: 20060218
  Serious: No
  Sender: FDA-Public Use
  Company Number: PHEH2005US05141

PATIENT
  Age: 78 Year
  Sex: Female

DRUGS (7)
  1. ENABLEX [Suspect]
     Indication: HYPERTONIC BLADDER
     Dosage: 15 MG QD
     Dates: start: 20050428
  2. DIOVAN [Concomitant]
  3. RELGAN (METOCLOPRAMIDE HYDROCHLORIDE) [Concomitant]
  4. DITROPAN XL [Concomitant]
  5. ASPIRIN (ACETYSALICYLIC ACID) [Concomitant]
  6. VITAMINS [Concomitant]
  7. ZYRTEC [Concomitant]

REACTIONS (3)
  - DECREASED APPETITE [None]
  - DRY MOUTH [None]
  - STOMACH DISCOMFORT [None]
